FAERS Safety Report 8813962 (Version 1)
Quarter: 2012Q4

REPORT INFORMATION
  Report Type: 
  Country: US (occurrence: US)
  Receive Date: 20120928
  Receipt Date: 20120928
  Transmission Date: 20130627
  Serious: No
  Sender: FDA-Public Use
  Company Number: US-009507513-1209USA009729

PATIENT
  Age: 66 Year
  Sex: Female

DRUGS (20)
  1. JANUVIA [Suspect]
     Indication: BLOOD GLUCOSE
     Dosage: 50 mg, UNK
     Route: 048
     Dates: start: 20120521, end: 201208
  2. JANUVIA [Suspect]
     Dosage: 100 mg, qd
     Route: 048
     Dates: start: 201208
  3. GLUCOTROL [Concomitant]
     Dosage: UNK
     Dates: end: 201208
  4. GLIPIZIDE [Concomitant]
     Dosage: UNK
     Dates: end: 201208
  5. TIZANIDINE HYDROCHLORIDE [Concomitant]
     Dosage: 4 mg, tid
  6. LANTUS [Concomitant]
     Dosage: 25 IU, bid
  7. CYMBALTA [Concomitant]
     Dosage: 60 mg, bid
  8. LIPITOR [Concomitant]
     Dosage: 20 mg, qd
  9. ROPINIROLE [Concomitant]
     Dosage: 2 mg, qd
  10. ATENOLOL [Concomitant]
     Dosage: 25 mg, qd
  11. DEXILANT [Concomitant]
     Dosage: 60 mg, qd
  12. CALCIUM (UNSPECIFIED) [Concomitant]
     Dosage: 600 mg, bid
  13. CLONIDINE [Concomitant]
     Dosage: 0.1 mg, bid
  14. VITAMINS (UNSPECIFIED) [Concomitant]
     Dosage: 1,qd
  15. APO ERYTHRO BASE [Concomitant]
     Dosage: 200 mg, tid
  16. METFORMIN [Concomitant]
     Dosage: 1000 mg, bid
  17. LEGATRIN PM [Concomitant]
     Dosage: UNK, qd
  18. OXYCODONE [Concomitant]
     Dosage: 350 mg, bid
  19. MELOXICAM [Concomitant]
     Dosage: 7.5 mg, bid
  20. FENTANYL [Concomitant]
     Dosage: 12 mg, per 72h

REACTIONS (1)
  - Headache [Recovered/Resolved]
